FAERS Safety Report 5631759-3 (Version None)
Quarter: 2008Q1

REPORT INFORMATION
  Report Type: 
  Country: None (occurrence: None)
  Receive Date: 20080206
  Receipt Date: 20080117
  Transmission Date: 20080703
  Serious: Yes (Other)
  Sender: FDA-Public Use
  Company Number: GAM-011-08-AT

PATIENT
  Sex: Female

DRUGS (1)
  1. OCTAGAM [Suspect]
     Indication: DRUG USE FOR UNKNOWN INDICATION

REACTIONS (1)
  - TOXOPLASMA SEROLOGY POSITIVE [None]
